FAERS Safety Report 9798994 (Version 2)
Quarter: 2015Q3

REPORT INFORMATION
  Report Type: Spontaneous
  Country: US (occurrence: US)
  Receive Date: 20140106
  Receipt Date: 20150806
  Transmission Date: 20151125
  Serious: No
  Sender: FDA-Public Use
  Company Number: US-GILEAD-2010-0032304

PATIENT
  Age: 22 Year
  Sex: Female
  Weight: 50.8 kg

DRUGS (17)
  1. FLOVENT [Concomitant]
     Active Substance: FLUTICASONE PROPIONATE
  2. PRILOSEC [Concomitant]
     Active Substance: OMEPRAZOLE MAGNESIUM
  3. DESFERAL [Concomitant]
     Active Substance: DEFEROXAMINE MESYLATE
  4. OXYCODONE [Concomitant]
     Active Substance: OXYCODONE
  5. ALBUTEROL. [Concomitant]
     Active Substance: ALBUTEROL
  6. SINGULAIR [Concomitant]
     Active Substance: MONTELUKAST SODIUM
  7. TRAZODONE [Concomitant]
     Active Substance: TRAZODONE HYDROCHLORIDE
  8. SENNA [Concomitant]
     Active Substance: SENNA LEAF\SENNOSIDES\SENNOSIDES A AND B
  9. NAPROXEN. [Concomitant]
     Active Substance: NAPROXEN
  10. HYDROXYUREA. [Concomitant]
     Active Substance: HYDROXYUREA
  11. BENADRYL [Concomitant]
     Active Substance: DIPHENHYDRAMINE HYDROCHLORIDE
  12. AMITRIPTYLENE [Concomitant]
     Active Substance: AMITRIPTYLINE
  13. ADVAIR HFA [Concomitant]
     Active Substance: FLUTICASONE PROPIONATE\SALMETEROL XINAFOATE
  14. PROZAC [Concomitant]
     Active Substance: FLUOXETINE HYDROCHLORIDE
  15. LETAIRIS [Suspect]
     Active Substance: AMBRISENTAN
     Indication: PULMONARY ARTERIAL HYPERTENSION
     Route: 048
     Dates: start: 20100719
  16. DIGOXIN. [Concomitant]
     Active Substance: DIGOXIN
  17. LASIX [Concomitant]
     Active Substance: FUROSEMIDE

REACTIONS (1)
  - Hepatic enzyme increased [Unknown]
